FAERS Safety Report 13812292 (Version 6)
Quarter: 2018Q3

REPORT INFORMATION
  Report Type: Report from Study
  Country: US (occurrence: US)
  Receive Date: 20170728
  Receipt Date: 20180719
  Transmission Date: 20181010
  Serious: No
  Sender: FDA-Public Use
  Company Number: US-AMGEN-USASL2017101030

PATIENT
  Age: 75 Year
  Sex: Female

DRUGS (3)
  1. REPATHA [Suspect]
     Active Substance: EVOLOCUMAB
     Indication: HYPERCHOLESTEROLAEMIA
     Dosage: 140 MG, Q2WK
     Route: 058
  2. REPATHA [Suspect]
     Active Substance: EVOLOCUMAB
     Dosage: 140 MG, QMO
     Route: 058
     Dates: start: 201701
  3. REPATHA [Suspect]
     Active Substance: EVOLOCUMAB
     Indication: BLOOD CHOLESTEROL INCREASED
     Dosage: 140 MG, QMO
     Route: 058
     Dates: start: 201606, end: 201609

REACTIONS (11)
  - Pyrexia [Unknown]
  - Muscle spasms [Unknown]
  - Off label use [Unknown]
  - Influenza like illness [Unknown]
  - Headache [Unknown]
  - Aphonia [Unknown]
  - Dizziness [Unknown]
  - Upper respiratory tract infection [Unknown]
  - Back pain [Unknown]
  - Fatigue [Unknown]
  - Nasopharyngitis [Unknown]

NARRATIVE: CASE EVENT DATE: 2017
